FAERS Safety Report 5628474-9 (Version None)
Quarter: 2008Q1

REPORT INFORMATION
  Report Type: 
  Country: None (occurrence: None)
  Receive Date: 20080215
  Receipt Date: 20080205
  Transmission Date: 20080703
  Serious: Yes (Hospitalization, Other)
  Sender: FDA-Public Use
  Company Number: FR-PFIZER INC-2008002088

PATIENT
  Sex: Male
  Weight: 103 kg

DRUGS (9)
  1. CHANTIX [Suspect]
     Indication: SMOKING CESSATION THERAPY
  2. AUGMENTIN '250' [Suspect]
  3. CALDINE [Concomitant]
  4. DETENSIEL [Concomitant]
  5. CRESTOR [Concomitant]
  6. SPIRIVA [Concomitant]
  7. ALLOPURINOL [Concomitant]
  8. ASPEGIC 1000 [Concomitant]
  9. SALBUTAMOL SULFATE [Concomitant]

REACTIONS (9)
  - COAGULATION FACTOR VIII LEVEL INCREASED [None]
  - COUGH [None]
  - DRUG INEFFECTIVE [None]
  - EOSINOPHILIA [None]
  - HAEMATOMA [None]
  - INFLAMMATION [None]
  - PLEURISY [None]
  - PRODUCTIVE COUGH [None]
  - PYREXIA [None]
